FAERS Safety Report 5221005-7 (Version None)
Quarter: 2007Q1

REPORT INFORMATION
  Report Type: 
  Country: None (occurrence: None)
  Receive Date: 20070126
  Receipt Date: 20070125
  Transmission Date: 20070707
  Serious: Yes (Death, Hospitalization)
  Sender: FDA-Public Use
  Company Number: ES-BRISTOL-MYERS SQUIBB COMPANY-13516554

PATIENT
  Age: 51 Year
  Sex: Female

DRUGS (4)
  1. CISPLATIN [Suspect]
     Indication: GASTRIC CANCER
     Route: 041
     Dates: start: 20060607, end: 20060607
  2. FLUOROURACIL [Suspect]
     Indication: GASTRIC CANCER
     Route: 041
     Dates: start: 20060607, end: 20060612
  3. FERRUM [Concomitant]
     Indication: ANAEMIA
     Route: 048
     Dates: start: 20060601, end: 20060618
  4. BUPRENORPHINE HCL [Concomitant]
     Indication: CANCER PAIN
     Route: 062
     Dates: start: 20060601, end: 20060625

REACTIONS (3)
  - MULTI-ORGAN FAILURE [None]
  - SEPTIC SHOCK [None]
  - TUMOUR PERFORATION [None]
